FAERS Safety Report 10688338 (Version 1)
Quarter: 2014Q4

REPORT INFORMATION
  Report Type: Spontaneous
  Country: US (occurrence: None)
  Receive Date: 20141231
  Receipt Date: 20141231
  Transmission Date: 20150529
  Serious: No
  Sender: FDA-Public Use
  Company Number: 2014-00117

PATIENT
  Age: 39 Year
  Sex: Female
  Weight: 109.77 kg

DRUGS (2)
  1. ZICAM INTENSE SINUS RELIEF [Suspect]
     Active Substance: OXYMETAZOLINE HYDROCHLORIDE
     Indication: NASOPHARYNGITIS
     Dosage: 1 SPRAY
     Route: 045
     Dates: start: 20141223, end: 20141224
  2. UNSPECIFIED HYPERTENSION MEDICATION [Concomitant]

REACTIONS (2)
  - Anosmia [None]
  - Ageusia [None]

NARRATIVE: CASE EVENT DATE: 20141224
